FAERS Safety Report 15544765 (Version 1)
Quarter: 2018Q4

REPORT INFORMATION
  Report Type: Spontaneous
  Country: PT (occurrence: PT)
  Receive Date: 20181024
  Receipt Date: 20181024
  Transmission Date: 20190205
  Serious: Yes (Other)
  Sender: FDA-Public Use
  Company Number: PT-TEVA-2018-PT-960854

PATIENT
  Age: 48 Year
  Sex: Female

DRUGS (3)
  1. BISOPROLOL [Suspect]
     Active Substance: BISOPROLOL
     Indication: EXTRASYSTOLES
     Dosage: 5 MILLIGRAM DAILY;
     Route: 048
     Dates: start: 20180830, end: 20180907
  2. CLONAZEPAM. [Concomitant]
     Active Substance: CLONAZEPAM
     Indication: DEPRESSION
     Dosage: 2 MILLIGRAM DAILY;
     Route: 048
     Dates: start: 2017
  3. VENLAFAXINE [Concomitant]
     Active Substance: VENLAFAXINE HYDROCHLORIDE
     Indication: DEPRESSION
     Dosage: 75 MILLIGRAM DAILY;
     Route: 048
     Dates: start: 2016

REACTIONS (2)
  - Pruritus [Recovered/Resolved]
  - Urticaria [Recovered/Resolved]

NARRATIVE: CASE EVENT DATE: 20180904
